FAERS Safety Report 14951343 (Version 1)
Quarter: 2018Q2

REPORT INFORMATION
  Report Type: Spontaneous
  Country: IT (occurrence: IT)
  Receive Date: 20180530
  Receipt Date: 20180530
  Transmission Date: 20180711
  Serious: Yes (Other)
  Sender: FDA-Public Use
  Company Number: IT-ELI_LILLY_AND_COMPANY-IT201805010682

PATIENT
  Age: 55 Year
  Sex: Female
  Weight: 51 kg

DRUGS (4)
  1. GEMCITABINE HYDROCHLORIDE. [Suspect]
     Active Substance: GEMCITABINE HYDROCHLORIDE
     Indication: BREAST CANCER
     Dosage: 1510 MG, CYCLICAL
     Route: 042
     Dates: start: 20180503, end: 20180509
  2. CARBOPLATIN. [Suspect]
     Active Substance: CARBOPLATIN
     Indication: BREAST CANCER
     Dosage: 239.5 MG, CYCLICAL
     Route: 042
     Dates: start: 20180503, end: 20180509
  3. URSOBIL [Concomitant]
     Active Substance: URSODIOL
     Dosage: UNK UNK, UNKNOWN
     Route: 048
  4. TAD                                /00317401/ [Concomitant]
     Dosage: UNK UNK, UNKNOWN
     Route: 065

REACTIONS (3)
  - Thrombocytopenia [Unknown]
  - Hypertransaminasaemia [Unknown]
  - Off label use [Unknown]

NARRATIVE: CASE EVENT DATE: 20180509
